FAERS Safety Report 19950864 (Version 2)
Quarter: 2021Q4

REPORT INFORMATION
  Report Type: Report from Study
  Country: FR (occurrence: FR)
  Receive Date: 20211013
  Receipt Date: 20211025
  Transmission Date: 20220303
  Serious: Yes (Death, Hospitalization, Other)
  Sender: FDA-Public Use
  Company Number: FR-BRISTOL-MYERS SQUIBB COMPANY-BMS-2021-055595

PATIENT
  Age: 78 Year
  Sex: Male
  Weight: 68 kg

DRUGS (24)
  1. LEUCOVORIN CALCIUM [Suspect]
     Active Substance: LEUCOVORIN CALCIUM
     Indication: Chemotherapy
     Dosage: UNK
     Route: 065
  2. FLUOROURACIL [Suspect]
     Active Substance: FLUOROURACIL
     Indication: Chemotherapy
     Dosage: UNK
     Route: 065
  3. IRINOTECAN [Suspect]
     Active Substance: IRINOTECAN
     Indication: Chemotherapy
     Dosage: UNK
     Route: 065
  4. APIXABAN [Suspect]
     Active Substance: APIXABAN
     Indication: Embolism venous
     Dosage: UNK UNK, QD (5 MG TWICE A DAY OR 2.5 MG TWICE A DAY ACCORDING TO THE RANDOMIZATION GROUP)
     Route: 048
     Dates: start: 20210225, end: 20210503
  5. ACETAMINOPHEN [Concomitant]
     Active Substance: ACETAMINOPHEN
     Indication: Analgesic therapy
     Dosage: 3 GRAM, QD
     Route: 048
     Dates: start: 20210427
  6. PANTOPRAZOLE [Concomitant]
     Active Substance: PANTOPRAZOLE
     Dosage: 40 MILLIGRAM, QD
     Route: 048
     Dates: start: 20210427
  7. OXYCODONE HYDROCHLORIDE [Concomitant]
     Active Substance: OXYCODONE HYDROCHLORIDE
     Indication: Analgesic therapy
     Dosage: 200 MILLIGRAM, QD
     Route: 042
     Dates: start: 20210504
  8. FILGRASTIM [Concomitant]
     Active Substance: FILGRASTIM
     Indication: Colony stimulating factor therapy
     Dosage: 300 MICROGRAM, QD
     Route: 058
     Dates: start: 20210427
  9. ARTISIAL [Concomitant]
     Active Substance: CALCIUM CHLORIDE\MAGNESIUM CHLORIDE\POTASSIUM CHLORIDE\POTASSIUM PHOSPHATE, DIBASIC\POTASSIUM PHOSPH
     Dosage: UNK
     Route: 048
     Dates: start: 20210427
  10. SPIRAMYCIN [Concomitant]
     Active Substance: SPIRAMYCIN
     Indication: Antibiotic prophylaxis
     Dosage: UNK
     Route: 042
     Dates: start: 20210503, end: 20210512
  11. MIDAZOLAM [Concomitant]
     Active Substance: MIDAZOLAM
     Indication: Adverse event
     Dosage: 50 MILLIGRAM, QD
     Route: 042
     Dates: start: 20210507
  12. MIDAZOLAM [Concomitant]
     Active Substance: MIDAZOLAM
     Indication: Psychotherapy
     Dosage: UNK
     Route: 065
  13. METHYLPREDNISOLONE [Concomitant]
     Active Substance: METHYLPREDNISOLONE
     Indication: Antiinflammatory therapy
     Dosage: 40 MILLIGRAM, QD
     Route: 042
  14. ONDANSETRON [Concomitant]
     Active Substance: ONDANSETRON
     Indication: Nausea
     Dosage: 8 MILLIGRAM, QD
     Route: 048
     Dates: start: 20210427
  15. ALFUZOSIN [Concomitant]
     Active Substance: ALFUZOSIN
     Dosage: 10 MILLIGRAM, QD
     Route: 048
     Dates: start: 20210427
  16. FRESUBIN                           /08301801/ [Concomitant]
     Indication: Nutritional supplementation
     Dosage: UNK
     Route: 048
     Dates: start: 20210427
  17. CHLORPROMAZINE [Concomitant]
     Active Substance: CHLORPROMAZINE
     Dosage: 25 MILLIGRAM, QD
     Route: 030
     Dates: start: 20210427
  18. DEXAMETHASONE [Concomitant]
     Active Substance: DEXAMETHASONE
     Indication: Antiinflammatory therapy
     Dosage: 6 MILLIGRAM, QD
     Route: 042
     Dates: start: 20210503
  19. DEXAMETHASONE [Concomitant]
     Active Substance: DEXAMETHASONE
     Indication: Immunosuppressant drug therapy
     Dosage: UNK
     Route: 065
  20. PIPERACILLIN SODIUM\TAZOBACTAM SODIUM [Concomitant]
     Active Substance: PIPERACILLIN SODIUM\TAZOBACTAM SODIUM
     Indication: Antibiotic prophylaxis
     Dosage: UNK
     Route: 042
     Dates: start: 20210507, end: 20210512
  21. PREDNISOLONE [Concomitant]
     Active Substance: PREDNISOLONE
     Indication: Antiinflammatory therapy
     Dosage: 60 MILLIGRAM, QD
     Route: 060
     Dates: start: 20210427
  22. CIFLOXIN                           /00697201/ [Concomitant]
     Indication: Antibiotic prophylaxis
     Dosage: UNK
     Route: 065
  23. CIFLOXIN                           /00697201/ [Concomitant]
     Dosage: UNK
     Route: 065
  24. PIPERACILLIN SODIUM\TAZOBACTAM SODIUM [Concomitant]
     Active Substance: PIPERACILLIN SODIUM\TAZOBACTAM SODIUM
     Indication: Antibiotic prophylaxis
     Dosage: UNK
     Route: 065

REACTIONS (5)
  - COVID-19 [Fatal]
  - Anaemia [Recovered/Resolved with Sequelae]
  - Neutropenia [Recovered/Resolved with Sequelae]
  - Febrile bone marrow aplasia [Recovered/Resolved with Sequelae]
  - Melaena [Recovered/Resolved with Sequelae]

NARRATIVE: CASE EVENT DATE: 20210427
